FAERS Safety Report 4522528-6 (Version None)
Quarter: 2004Q4

REPORT INFORMATION
  Report Type: 
  Country: None (occurrence: None)
  Receive Date: 20041207
  Receipt Date: 20041122
  Transmission Date: 20050328
  Serious: Yes (Hospitalization)
  Sender: FDA-Public Use
  Company Number: 2004GB02811

PATIENT
  Age: 81 Year
  Sex: Male

DRUGS (7)
  1. CRESTOR [Suspect]
     Indication: BLOOD CHOLESTEROL INCREASED
     Dosage: 10 MG PO
     Route: 048
     Dates: start: 20040901, end: 20041103
  2. ASPIRIN [Concomitant]
  3. ATENOLOL [Concomitant]
  4. ZOLADEX [Concomitant]
  5. MONOMAX [Concomitant]
  6. FLOMAX [Concomitant]
  7. BICALUTAMIDE [Concomitant]

REACTIONS (2)
  - FEELING ABNORMAL [None]
  - RENAL FAILURE ACUTE [None]
